FAERS Safety Report 25540729 (Version 2)
Quarter: 2025Q3

REPORT INFORMATION
  Report Type: Spontaneous
  Country: US (occurrence: US)
  Receive Date: 20250710
  Receipt Date: 20250729
  Transmission Date: 20251021
  Serious: Yes (Other)
  Sender: NOVARTIS
  Company Number: US-002147023-NVSC2025US107091

PATIENT
  Age: 80 Year
  Sex: Female

DRUGS (4)
  1. SANDOSTATIN [Suspect]
     Active Substance: OCTREOTIDE ACETATE
     Indication: Neuroendocrine tumour
     Dosage: 30 MG, Q4W (EVERY 28 DAYS)
     Route: 058
  2. SANDOSTATIN [Suspect]
     Active Substance: OCTREOTIDE ACETATE
  3. SANDOSTATIN [Suspect]
     Active Substance: OCTREOTIDE ACETATE
  4. CABOMETYX [Suspect]
     Active Substance: CABOZANTINIB S-MALATE
     Indication: Neuroendocrine tumour
     Dosage: 40 MG, QD
     Route: 065
     Dates: start: 20250507, end: 20250615

REACTIONS (10)
  - Haematemesis [Unknown]
  - Blood pressure systolic increased [Unknown]
  - Nausea [Unknown]
  - Vomiting [Not Recovered/Not Resolved]
  - Skin lesion [Unknown]
  - Constipation [Unknown]
  - Pain [Unknown]
  - Fatigue [Unknown]
  - Asthenia [Not Recovered/Not Resolved]
  - Sleep disorder [Not Recovered/Not Resolved]

NARRATIVE: CASE EVENT DATE: 20250528
